FAERS Safety Report 21840011 (Version 1)
Quarter: 2023Q1

REPORT INFORMATION
  Report Type: Report from Study
  Country: US (occurrence: US)
  Receive Date: 20230110
  Receipt Date: 20230110
  Transmission Date: 20230418
  Serious: No
  Sender: FDA-Public Use
  Company Number: US-002147023-NVSC2023US003999

PATIENT
  Age: 67 Year
  Sex: Male

DRUGS (2)
  1. ENTRESTO [Suspect]
     Active Substance: SACUBITRIL\VALSARTAN
     Indication: Cardiac failure chronic
     Dosage: 1 DOSAGE FORM, BID
     Route: 048
     Dates: start: 20220711
  2. ENTRESTO [Suspect]
     Active Substance: SACUBITRIL\VALSARTAN
     Dosage: 0.5 DOSAGE FORM, BID (HALF TAB TWICE DAILY)
     Route: 048

REACTIONS (3)
  - Hypertension [Unknown]
  - Prescribed underdose [Unknown]
  - Wrong technique in product usage process [Unknown]
